FAERS Safety Report 5033497-7 (Version None)
Quarter: 2006Q2

REPORT INFORMATION
  Report Type: 
  Country: None (occurrence: None)
  Receive Date: 20060518
  Receipt Date: 20060314
  Transmission Date: 20061013
  Serious: Yes (Other)
  Sender: FDA-Public Use
  Company Number: 2006034692

PATIENT
  Age: 20 Year
  Sex: Female
  Weight: 83.0083 kg

DRUGS (3)
  1. DEPO-PROVERA [Suspect]
     Indication: CONTRACEPTION
     Dosage: 150 MG (150 MG, 1ST INJECTION, 1ST CYCLE), INTRAMUSCULAR - SEE IMAGE
     Route: 030
     Dates: start: 20040127, end: 20040127
  2. DEPO-PROVERA [Suspect]
     Indication: CONTRACEPTION
     Dosage: 150 MG (150 MG, 1ST INJECTION, 1ST CYCLE), INTRAMUSCULAR - SEE IMAGE
     Route: 030
     Dates: start: 20051018, end: 20051018
  3. DEPO-PROVERA [Suspect]
     Indication: CONTRACEPTION
     Dosage: 150 MG (150 MG, 1ST INJECTION, 1ST CYCLE), INTRAMUSCULAR - SEE IMAGE
     Route: 030
     Dates: start: 20060110, end: 20060110

REACTIONS (1)
  - UNINTENDED PREGNANCY [None]
